FAERS Safety Report 12614061 (Version 1)
Quarter: 2016Q3

REPORT INFORMATION
  Report Type: Report from Study
  Country: DE (occurrence: DE)
  Receive Date: 20160802
  Receipt Date: 20160802
  Transmission Date: 20161109
  Serious: Yes (Hospitalization)
  Sender: FDA-Public Use
  Company Number: DE-ABBVIE-16K-062-1552888-00

PATIENT
  Age: 58 Year
  Sex: Male

DRUGS (3)
  1. HUMIRA [Suspect]
     Active Substance: ADALIMUMAB
     Indication: ANKYLOSING SPONDYLITIS
     Route: 058
     Dates: start: 20100201
  2. VOLTAREN [Suspect]
     Active Substance: DICLOFENAC SODIUM
     Indication: PAIN IN EXTREMITY
     Route: 065
     Dates: start: 201601
  3. INSULINE [Concomitant]
     Active Substance: INSULIN NOS
     Indication: PRODUCT USED FOR UNKNOWN INDICATION

REACTIONS (9)
  - Pain in extremity [Recovered/Resolved]
  - Bone loss [Recovered/Resolved]
  - Syncope [Recovered/Resolved]
  - Pain in extremity [Recovered/Resolved]
  - Local swelling [Recovered/Resolved]
  - Feeling hot [Recovered/Resolved]
  - Inflammation [Recovered/Resolved]
  - Nausea [Recovered/Resolved]
  - Fall [Recovered/Resolved]

NARRATIVE: CASE EVENT DATE: 201601
